FAERS Safety Report 14862132 (Version 2)
Quarter: 2018Q2

REPORT INFORMATION
  Report Type: Spontaneous
  Country: ES (occurrence: ES)
  Receive Date: 20180508
  Receipt Date: 20180514
  Transmission Date: 20180711
  Serious: No
  Sender: FDA-Public Use
  Company Number: ES-PFIZER INC-2018182306

PATIENT
  Age: 54 Year
  Sex: Male

DRUGS (2)
  1. HEPARIN SODIUM. [Suspect]
     Active Substance: HEPARIN SODIUM
     Dosage: UNK
     Route: 058
  2. MITOMYCIN C [Concomitant]
     Active Substance: MITOMYCIN
     Dosage: 0.2 MG/ML, UNK(INTRAOPERATIVE)

REACTIONS (1)
  - No adverse event [Unknown]
